FAERS Safety Report 20647111 (Version 1)
Quarter: 2022Q1

REPORT INFORMATION
  Report Type: Spontaneous
  Country: US (occurrence: None)
  Receive Date: 20220328
  Receipt Date: 20220328
  Transmission Date: 20220423
  Serious: No
  Sender: FDA-Public Use
  Company Number: None

PATIENT
  Sex: Female

DRUGS (6)
  1. TACROLIMUS [Suspect]
     Active Substance: TACROLIMUS
     Indication: Liver transplant
     Dosage: TAKE ONE CAPSULE BY MOUTH EVERY 12 HOURS
     Route: 048
     Dates: start: 20170220
  2. CELEXA TAB 20MG [Concomitant]
  3. LIPITOR TAB 20MG [Concomitant]
  4. LYRICA CAP 25MG [Concomitant]
  5. MULTI-VITAMIN TAB [Concomitant]
  6. ZANTAC TAB 150MG [Concomitant]

REACTIONS (1)
  - Skin cancer [None]
